FAERS Safety Report 7377726-3 (Version None)
Quarter: 2011Q1

REPORT INFORMATION
  Report Type: 
  Country: None (occurrence: None)
  Receive Date: 20110328
  Receipt Date: 20110324
  Transmission Date: 20110831
  Serious: Yes (Other)
  Sender: FDA-Public Use
  Company Number: CO-PFIZER INC-2011066823

PATIENT
  Age: 54 Year
  Sex: Male

DRUGS (1)
  1. DOSTINEX [Suspect]
     Dosage: 0.25 MG, 2X/WEEK
     Route: 048
     Dates: start: 20101201

REACTIONS (1)
  - PITUITARY TUMOUR REMOVAL [None]
